FAERS Safety Report 8781779 (Version 8)
Quarter: 2014Q2

REPORT INFORMATION
  Report Type: Spontaneous
  Country: JP (occurrence: JP)
  Receive Date: 20120913
  Receipt Date: 20140605
  Transmission Date: 20141212
  Serious: Yes (Hospitalization, Other)
  Sender: FDA-Public Use
  Company Number: JP-009507513-1209JPN003174

PATIENT
  Age: 41 Year
  Sex: Male
  Weight: 77 kg

DRUGS (3)
  1. PROPECIA TABLETS 1MG [Suspect]
     Indication: ANDROGENETIC ALOPECIA
     Dosage: 1 MG, QD
     Route: 048
     Dates: start: 201009, end: 20120902
  2. PROPECIA TABLETS 1MG [Suspect]
     Dosage: UNK
  3. MINOXIDIL [Suspect]
     Indication: ANDROGENETIC ALOPECIA
     Dosage: 6 MG, QD
     Route: 048
     Dates: start: 201009, end: 20120902

REACTIONS (1)
  - Cerebral infarction [Recovered/Resolved]
